FAERS Safety Report 21737024 (Version 2)
Quarter: 2022Q4

REPORT INFORMATION
  Report Type: Spontaneous
  Country: US (occurrence: US)
  Receive Date: 20221216
  Receipt Date: 20221222
  Transmission Date: 20230113
  Serious: Yes (Hospitalization)
  Sender: FDA-Public Use
  Company Number: US-BIOVITRUM-2022US14843

PATIENT
  Sex: Female
  Weight: 8 kg

DRUGS (2)
  1. SYNAGIS [Suspect]
     Active Substance: PALIVIZUMAB
     Indication: Premature baby
     Dates: start: 202111
  2. TYLENOL [Concomitant]
     Active Substance: ACETAMINOPHEN
     Dosage: TABLET

REACTIONS (3)
  - Influenza [Unknown]
  - Influenza [Unknown]
  - Product dose omission issue [Unknown]
